FAERS Safety Report 4275453-2 (Version None)
Quarter: 2004Q1

REPORT INFORMATION
  Report Type: 
  Country: None (occurrence: None)
  Receive Date: 20040121
  Receipt Date: 20040115
  Transmission Date: 20041129
  Serious: Yes (Hospitalization)
  Sender: FDA-Public Use
  Company Number: 200410443GDDC

PATIENT
  Age: 70 Year
  Sex: Male

DRUGS (5)
  1. LOVENOX [Suspect]
     Indication: ACUTE CORONARY SYNDROME
     Route: 058
     Dates: start: 20040111, end: 20040112
  2. CORONARY VASODILATORS [Concomitant]
  3. ASCARDIA [Concomitant]
  4. NORVASC [Concomitant]
  5. ACCUPRIL [Concomitant]

REACTIONS (1)
  - CONVULSION [None]
